FAERS Safety Report 10148860 (Version 1)
Quarter: 2014Q2

REPORT INFORMATION
  Report Type: Spontaneous
  Country: FR (occurrence: FR)
  Receive Date: 20140502
  Receipt Date: 20140502
  Transmission Date: 20141212
  Serious: Yes (Other)
  Sender: FDA-Public Use
  Company Number: FR-ROCHE-1393129

PATIENT
  Age: 61 Year
  Sex: Male

DRUGS (12)
  1. VEMURAFENIB [Suspect]
     Indication: METASTATIC MALIGNANT MELANOMA
     Route: 065
  2. VEMURAFENIB [Suspect]
     Dosage: DOSE WAS MAINTAINED
     Route: 065
  3. VEMURAFENIB [Suspect]
     Dosage: VEMURAFENIB DOSE WAS REDUCED BY 25%, TO 720 MG TWICE DAILY BECAUSE OF HEPATIC DYSFUNCTION.
     Route: 065
  4. CISPLATIN [Suspect]
     Indication: METASTATIC MALIGNANT MELANOMA
     Dosage: 9 CYCLES OF CHEMOTHERAPY
     Route: 065
  5. OLMESARTAN [Suspect]
     Indication: HYPERTENSION
     Route: 065
  6. OLMESARTAN [Suspect]
     Dosage: DOSE REDUCED
     Route: 065
  7. HYDROCHLOROTHIAZIDE [Suspect]
     Indication: HYPERTENSION
     Route: 065
  8. HYDROCHLOROTHIAZIDE [Suspect]
     Dosage: DOSE REDUCED
     Route: 065
  9. DACARBAZINE [Concomitant]
     Dosage: 9 CYCLES OF DACARBAZINE WITH CISPLATIN AND CARMUSTINE AND 3 CYCLES OF DACARBAZINE ALONE
     Route: 065
  10. CARMUSTINE [Concomitant]
  11. LYSINE ACETYLSALICYLATE [Concomitant]
  12. NICARDIPINE [Concomitant]

REACTIONS (6)
  - Renal failure acute [Unknown]
  - Proteinuria [Not Recovered/Not Resolved]
  - Haematuria [Recovered/Resolved]
  - Hepatocellular injury [Unknown]
  - Cholestasis [Unknown]
  - Acne [Unknown]
